FAERS Safety Report 5587068-4 (Version None)
Quarter: 2008Q1

REPORT INFORMATION
  Report Type: 
  Country: None (occurrence: None)
  Receive Date: 20080110
  Receipt Date: 20080103
  Transmission Date: 20080703
  Serious: Yes (Hospitalization)
  Sender: FDA-Public Use
  Company Number: B0361289A

PATIENT
  Sex: Female

DRUGS (2)
  1. PAROXETINE HYDROCHLORIDE [Suspect]
     Indication: BULIMIA NERVOSA
     Route: 065
     Dates: start: 20020919
  2. WARFARIN SODIUM [Concomitant]

REACTIONS (13)
  - ABNORMAL BEHAVIOUR [None]
  - ALCOHOLISM [None]
  - ANXIETY [None]
  - APATHY [None]
  - ASTHENIA [None]
  - DISTURBANCE IN ATTENTION [None]
  - DRUG WITHDRAWAL SYNDROME [None]
  - INTENTIONAL SELF-INJURY [None]
  - NIGHTMARE [None]
  - PANIC ATTACK [None]
  - PARAESTHESIA [None]
  - PERSONALITY CHANGE [None]
  - SLEEP DISORDER [None]
